FAERS Safety Report 5385032-1 (Version None)
Quarter: 2007Q3

REPORT INFORMATION
  Report Type: 
  Country: None (occurrence: None)
  Receive Date: 20070712
  Receipt Date: 20070704
  Transmission Date: 20080115
  Serious: Yes (Other)
  Sender: FDA-Public Use
  Company Number: PHBS2007JP11466

PATIENT
  Age: 59 Year
  Sex: Male

DRUGS (2)
  1. BASILIXIMAB [Suspect]
     Indication: RENAL TRANSPLANT
     Route: 065
  2. CYCLOSPORINE [Suspect]
     Indication: RENAL TRANSPLANT
     Route: 065

REACTIONS (4)
  - KIDNEY TRANSPLANT REJECTION [None]
  - LUNG INFECTION [None]
  - NOCARDIOSIS [None]
  - RENAL TUBULAR DISORDER [None]
